FAERS Safety Report 7421432-3 (Version None)
Quarter: 2011Q2

REPORT INFORMATION
  Report Type: 
  Country: None (occurrence: None)
  Receive Date: 20110418
  Receipt Date: 20110407
  Transmission Date: 20111010
  Serious: No
  Sender: FDA-Public Use
  Company Number: US-JNJFOC-20110403993

PATIENT
  Sex: Male

DRUGS (6)
  1. DURAGESIC [Suspect]
     Dosage: TREATMENT DURATION: 6 MONTHS
     Route: 062
  2. DURAGESIC [Suspect]
     Dosage: TREATMENT DURATION: FOR FEW YEARS
     Route: 062
  3. DURAGESIC [Suspect]
     Indication: PAIN
     Dosage: TREATMENT DURATION: FOR ABOUT A YEAR AND HALF
     Route: 062
  4. DURAGESIC [Suspect]
     Dosage: ONE PATCH EVERY 4-5 DAYS
     Route: 062
  5. DURAGESIC [Suspect]
     Dosage: TREATMENT START DATE: FEB OR MAR-2011
     Route: 062
  6. DURAGESIC [Suspect]
     Dosage: THERAPY START DATE: 2005-06
     Route: 062

REACTIONS (3)
  - INAPPROPRIATE SCHEDULE OF DRUG ADMINISTRATION [None]
  - INCORRECT DRUG ADMINISTRATION DURATION [None]
  - PAIN [None]
